FAERS Safety Report 5689975-0 (Version None)
Quarter: 2008Q2

REPORT INFORMATION
  Report Type: 
  Country: None (occurrence: None)
  Receive Date: 20080401
  Receipt Date: 20071127
  Transmission Date: 20081010
  Serious: No
  Sender: FDA-Public Use
  Company Number: A0648208A

PATIENT
  Age: 86 Year
  Sex: Female
  Weight: 70.9 kg

DRUGS (10)
  1. FLONASE [Suspect]
     Route: 045
     Dates: start: 20040101, end: 20060401
  2. HYDROCHLOROTHIAZIDE [Concomitant]
     Dosage: 25MG PER DAY
     Route: 048
     Dates: start: 19900101
  3. GLIPIZIDE [Concomitant]
     Dosage: 5MG PER DAY
     Route: 048
     Dates: start: 20030101
  4. ZETIA [Concomitant]
     Dosage: 10MG PER DAY
     Route: 048
     Dates: start: 20040101
  5. DETROL [Concomitant]
     Dosage: 5MG PER DAY
     Route: 048
     Dates: start: 20040101
  6. TYLENOL (CAPLET) [Concomitant]
     Dosage: 650MG PER DAY
     Route: 048
     Dates: start: 19950101
  7. CALCIUM [Concomitant]
     Dosage: 1000MG PER DAY
     Route: 048
  8. GLUCOSAMINE [Concomitant]
     Dosage: 1500MG PER DAY
     Route: 048
  9. CHONDROITIN [Concomitant]
  10. ASPIRIN [Concomitant]
     Dosage: 81MG PER DAY
     Route: 048

REACTIONS (4)
  - NASAL DISCOMFORT [None]
  - NASAL INFLAMMATION [None]
  - RASH [None]
  - SKIN IRRITATION [None]
